FAERS Safety Report 4549757-X (Version None)
Quarter: 2004Q4

REPORT INFORMATION
  Report Type: 
  Country: None (occurrence: None)
  Receive Date: 20041227
  Receipt Date: 20040910
  Transmission Date: 20050328
  Serious: No
  Sender: FDA-Public Use
  Company Number: 04P-163-0272891-00

PATIENT
  Age: 37 Year
  Sex: Female
  Weight: 104.5 kg

DRUGS (6)
  1. HUMIRA [Suspect]
     Indication: RHEUMATOID ARTHRITIS
     Dosage: 40 MG, 1 IN 2 WK, SUBCUTANEOUS
     Route: 058
     Dates: start: 20040830
  2. GLIMEPIRIDE [Concomitant]
  3. PIOGLITAZONE HCL [Concomitant]
  4. METHOTREXATE SODIUM [Concomitant]
  5. BUDESONIDE [Concomitant]
  6. ORAL CONTRACEPTIVE [Concomitant]

REACTIONS (3)
  - NAUSEA [None]
  - PNEUMONIA [None]
  - URINARY TRACT INFECTION [None]
